FAERS Safety Report 11470161 (Version 2)
Quarter: 2015Q3

REPORT INFORMATION
  Report Type: Spontaneous
  Country: US (occurrence: US)
  Receive Date: 20150903
  Receipt Date: 20150903
  Transmission Date: 20151125
  Serious: No
  Sender: FDA-Public Use
  Company Number: US-ELI_LILLY_AND_COMPANY-US201111005431

PATIENT
  Age: 45 Year
  Sex: Male

DRUGS (3)
  1. CYMBALTA [Suspect]
     Active Substance: DULOXETINE HYDROCHLORIDE
     Indication: NEUROPATHY PERIPHERAL
     Dosage: 60 MG, QD
     Dates: start: 2010, end: 20111110
  2. TRAMADOL. [Concomitant]
     Active Substance: TRAMADOL
  3. NEURONTIN [Concomitant]
     Active Substance: GABAPENTIN

REACTIONS (4)
  - Malaise [Not Recovered/Not Resolved]
  - Feeling abnormal [Not Recovered/Not Resolved]
  - White blood cell count increased [Unknown]
  - Dizziness [Not Recovered/Not Resolved]
